FAERS Safety Report 17988616 (Version 1)
Quarter: 2020Q3

REPORT INFORMATION
  Report Type: Spontaneous
  Country: US (occurrence: US)
  Receive Date: 20200707
  Receipt Date: 20200707
  Transmission Date: 20201103
  Serious: No
  Sender: FDA-Public Use
  Company Number: US-PFIZER INC-2020256509

PATIENT
  Age: 50 Year
  Sex: Female

DRUGS (6)
  1. VITAMIN D [ERGOCALCIFEROL] [Concomitant]
     Active Substance: ERGOCALCIFEROL
     Dosage: UNK
  2. CRESTOR [Concomitant]
     Active Substance: ROSUVASTATIN CALCIUM
     Dosage: UNK, (10 MG)
  3. CALCIUM [Concomitant]
     Active Substance: CALCIUM
     Dosage: UNK, (500)
  4. SOMAVERT [Suspect]
     Active Substance: PEGVISOMANT
     Indication: GIGANTISM
     Dosage: 20 MG, ALTERNATE DAY
     Route: 058
  5. SOMAVERT [Suspect]
     Active Substance: PEGVISOMANT
     Indication: ACROMEGALY
     Dosage: 20 MG, DAILY
     Route: 058
     Dates: start: 201905
  6. LEVO?T [Concomitant]
     Active Substance: LEVOTHYROXINE SODIUM
     Dosage: UNK, (50 MCG)

REACTIONS (2)
  - Off label use [Unknown]
  - Headache [Recovering/Resolving]
